FAERS Safety Report 6289145-1 (Version None)
Quarter: 2009Q3

REPORT INFORMATION
  Report Type: 
  Country: None (occurrence: None)
  Receive Date: 20090729
  Receipt Date: 20090720
  Transmission Date: 20100115
  Serious: Yes (Hospitalization)
  Sender: FDA-Public Use
  Company Number: FR-GILEAD-2009-0023204

PATIENT
  Sex: Male

DRUGS (6)
  1. EMTRIVA [Suspect]
     Indication: HIV INFECTION
     Route: 048
     Dates: end: 20090320
  2. BACTRIM [Suspect]
     Route: 042
     Dates: start: 20090306, end: 20090311
  3. BACTRIM DS [Suspect]
     Route: 048
     Dates: start: 20090312, end: 20090320
  4. TAVANIC [Suspect]
     Route: 048
     Dates: start: 20090227, end: 20090317
  5. ZIAGEN [Suspect]
     Route: 048
     Dates: end: 20090320
  6. ARIXTRA [Suspect]
     Route: 058
     Dates: start: 20090227, end: 20090317

REACTIONS (4)
  - BONE MARROW MYELOGRAM ABNORMAL [None]
  - LUNG DISORDER [None]
  - NEUTROPENIA [None]
  - THROMBOCYTOPENIA [None]
